FAERS Safety Report 8470678-4 (Version None)
Quarter: 2012Q2

REPORT INFORMATION
  Report Type: 
  Country: None (occurrence: None)
  Receive Date: 20120627
  Receipt Date: 20120622
  Transmission Date: 20120825
  Serious: Yes (Other)
  Sender: FDA-Public Use
  Company Number: FR-PFIZER INC-2012151603

PATIENT
  Sex: Female

DRUGS (2)
  1. LEVOTHYROXINE SODIUM [Interacting]
     Indication: HYPOTHYROIDISM
     Dosage: UNK
  2. ZOLOFT [Suspect]
     Dosage: UNK

REACTIONS (2)
  - DRUG INTERACTION [None]
  - HYPOTHYROIDISM [None]
